FAERS Safety Report 16265155 (Version 7)
Quarter: 2019Q3

REPORT INFORMATION
  Report Type: Spontaneous
  Country: JP (occurrence: JP)
  Receive Date: 20190502
  Receipt Date: 20190927
  Transmission Date: 20191004
  Serious: Yes (Hospitalization, Other)
  Sender: FDA-Public Use
  Company Number: JP-ASTRAZENECA-2019SE64756

PATIENT
  Age: 764 Month
  Sex: Male
  Weight: 91 kg

DRUGS (2)
  1. FORXIGA [Suspect]
     Active Substance: DAPAGLIFLOZIN
     Indication: TYPE 2 DIABETES MELLITUS
     Route: 048
     Dates: start: 201810, end: 20190412
  2. PITAVASTATIN CA [Concomitant]
     Active Substance: PITAVASTATIN CALCIUM
     Indication: DYSLIPIDAEMIA
     Route: 048

REACTIONS (7)
  - Road traffic accident [Recovered/Resolved]
  - Hypertension [Recovering/Resolving]
  - Euglycaemic diabetic ketoacidosis [Recovered/Resolved]
  - Atrial fibrillation [Not Recovered/Not Resolved]
  - Prinzmetal angina [Recovered/Resolved]
  - Syncope [Unknown]
  - Hyperventilation [Recovering/Resolving]

NARRATIVE: CASE EVENT DATE: 201903
